FAERS Safety Report 17439289 (Version 1)
Quarter: 2020Q1

REPORT INFORMATION
  Report Type: Spontaneous
  Country: US (occurrence: US)
  Receive Date: 20200205
  Receipt Date: 20200205
  Transmission Date: 20200409
  Serious: No
  Sender: FDA-Public Use
  Company Number: None

PATIENT
  Sex: Male

DRUGS (1)
  1. ARZERRA [Suspect]
     Active Substance: OFATUMUMAB
     Indication: CHRONIC LYMPHOCYTIC LEUKAEMIA
     Dosage: ?          OTHER FREQUENCY:EVERY 28 DAYS ;?
     Route: 042
     Dates: start: 20190904

REACTIONS (4)
  - Abdominal distension [None]
  - Alcohol use [None]
  - Abdominal pain upper [None]
  - Fatigue [None]
